FAERS Safety Report 19232761 (Version 2)
Quarter: 2021Q2

REPORT INFORMATION
  Report Type: Spontaneous
  Country: FR (occurrence: FR)
  Receive Date: 20210507
  Receipt Date: 20210512
  Transmission Date: 20210717
  Serious: Yes (Life-Threatening, Other)
  Sender: FDA-Public Use
  Company Number: FR-PFIZER INC-2021491199

PATIENT
  Age: 67 Year
  Sex: Male
  Weight: 77.3 kg

DRUGS (11)
  1. TAZOCILLINE [Suspect]
     Active Substance: PIPERACILLIN SODIUM\TAZOBACTAM SODIUM
     Indication: PYREXIA
     Dosage: 1500 MG, 1X/DAY
     Route: 041
     Dates: start: 20210402, end: 20210408
  2. OFLOXACINE [Concomitant]
     Active Substance: OFLOXACIN
     Dosage: UNK
  3. METHOTREXATE MYLAN [Interacting]
     Active Substance: METHOTREXATE SODIUM
     Indication: ANGIOCENTRIC LYMPHOMA
     Dosage: 5910 MG, 1X/DAY
     Route: 041
     Dates: start: 20210407, end: 20210407
  4. NYSTATINE [Concomitant]
     Active Substance: NYSTATIN
     Dosage: UNK
  5. AZOPT [Concomitant]
     Active Substance: BRINZOLAMIDE
     Dosage: UNK
  6. DEXAMETHASONE. [Concomitant]
     Active Substance: DEXAMETHASONE
     Dosage: UNK
  7. CETIRIZINE [Concomitant]
     Active Substance: CETIRIZINE HYDROCHLORIDE
     Dosage: UNK
  8. ASPARAGINASE [Concomitant]
     Active Substance: ASPARAGINASE
     Dosage: UNK
  9. OGASTORO [Interacting]
     Active Substance: LANSOPRAZOLE
     Dosage: 15 MG, 1X/DAY
     Route: 048
     Dates: start: 20210407, end: 20210408
  10. APREPITANT. [Concomitant]
     Active Substance: APREPITANT
     Dosage: UNK
  11. GEMCITABINE. [Concomitant]
     Active Substance: GEMCITABINE
     Dosage: UNK

REACTIONS (5)
  - Drug interaction [Not Recovered/Not Resolved]
  - Bone marrow failure [Not Recovered/Not Resolved]
  - Hepatitis [Not Recovered/Not Resolved]
  - Off label use [Unknown]
  - Acute kidney injury [Not Recovered/Not Resolved]

NARRATIVE: CASE EVENT DATE: 20210402
